FAERS Safety Report 7134647-9 (Version None)
Quarter: 2010Q4

REPORT INFORMATION
  Report Type: 
  Country: None (occurrence: None)
  Receive Date: 20101203
  Receipt Date: 20101123
  Transmission Date: 20110411
  Serious: Yes (Other)
  Sender: FDA-Public Use
  Company Number: PHHY2010SE79735

PATIENT

DRUGS (10)
  1. ZOMETA [Suspect]
     Dosage: UNK
     Dates: start: 20050101, end: 20090101
  2. PAMIDRONATE DISODIUM [Suspect]
  3. SELOKEN ZOC [Concomitant]
  4. THACAPZOL [Concomitant]
  5. ACETAMINOPHEN [Concomitant]
  6. SALURES [Concomitant]
  7. KALEORID [Concomitant]
  8. TROMBYL [Concomitant]
  9. TRADOLAN [Concomitant]
  10. FEMARA [Concomitant]

REACTIONS (1)
  - OSTEONECROSIS [None]
